FAERS Safety Report 6661538-X (Version None)
Quarter: 2010Q1

REPORT INFORMATION
  Report Type: 
  Country: None (occurrence: None)
  Receive Date: 20100331
  Receipt Date: 20100324
  Transmission Date: 20100710
  Serious: Yes (Hospitalization)
  Sender: FDA-Public Use
  Company Number: IT-PFIZER INC-2010016765

PATIENT
  Age: 18 Year
  Sex: Male

DRUGS (3)
  1. ZAVEDOS [Suspect]
     Indication: ACUTE PROMYELOCYTIC LEUKAEMIA
     Dosage: 48 MG TOTAL
     Route: 042
     Dates: start: 20100115, end: 20100121
  2. URBASON [Suspect]
     Indication: ACUTE PROMYELOCYTIC LEUKAEMIA
     Dosage: 20 MG DAILY
     Route: 042
     Dates: start: 20100113, end: 20100204
  3. VESANOID [Suspect]
     Indication: ACUTE PROMYELOCYTIC LEUKAEMIA
     Dosage: 44 MG DAILY
     Route: 048
     Dates: start: 20100113, end: 20100204

REACTIONS (4)
  - CELLULITIS [None]
  - HYPERPYREXIA [None]
  - OROPHARYNGEAL PAIN [None]
  - STOMATITIS [None]
